FAERS Safety Report 4664985-0 (Version None)
Quarter: 2005Q2

REPORT INFORMATION
  Report Type: 
  Country: None (occurrence: None)
  Receive Date: 20050517
  Receipt Date: 20050510
  Transmission Date: 20051028
  Serious: Yes (Other)
  Sender: FDA-Public Use
  Company Number: 2005069513

PATIENT
  Age: 73 Year
  Sex: Female
  Weight: 79.3795 kg

DRUGS (8)
  1. BENADRYL [Suspect]
     Indication: MULTIPLE ALLERGIES
     Dosage: 1 CAPLET HS, ORAL
     Route: 048
     Dates: start: 20030101, end: 20050401
  2. MOMETASONE FUROATE [Suspect]
     Indication: MULTIPLE ALLERGIES
     Dosage: 50 MCG (2 SPRAYS PER NOSTRIL), NASAL
     Route: 045
  3. LISINOPRIL [Concomitant]
  4. FLUOXETINE HCL [Concomitant]
  5. ATORVASTATIN CALCIUM [Concomitant]
  6. LORAZEPAM [Concomitant]
  7. DIDRONEL PMO [Concomitant]
  8. BUDESONIDE [Concomitant]

REACTIONS (2)
  - BLOOD PRESSURE DIASTOLIC DECREASED [None]
  - EPISTAXIS [None]
